FAERS Safety Report 7753054-9 (Version None)
Quarter: 2011Q3

REPORT INFORMATION
  Report Type: 
  Country: None (occurrence: None)
  Receive Date: 20110915
  Receipt Date: 20110906
  Transmission Date: 20111222
  Serious: Yes (Hospitalization)
  Sender: FDA-Public Use
  Company Number: IT-ASTRAZENECA-2011SE36927

PATIENT
  Age: 23767 Day
  Sex: Female

DRUGS (8)
  1. OMEPRAZOLE [Concomitant]
     Route: 048
  2. CRESTOR [Suspect]
     Indication: THROMBOSIS PROPHYLAXIS
     Route: 048
     Dates: start: 20110408, end: 20110614
  3. PLAVIX [Concomitant]
     Route: 048
     Dates: start: 20090501, end: 20110614
  4. CRESTOR [Suspect]
     Indication: DIABETES MELLITUS
     Route: 048
     Dates: start: 20110408, end: 20110614
  5. LANTUS [Concomitant]
     Dosage: 5 IU DAILY, 1 VIAL CONTAINS 100 UNIT OF GLARGINE INSULIN = 3,64 MG
  6. APIDRA [Concomitant]
  7. COLVER [Concomitant]
     Route: 048
     Dates: start: 20090717
  8. LYRICA [Concomitant]
     Route: 048
     Dates: start: 20090717

REACTIONS (2)
  - RENAL FAILURE ACUTE [None]
  - RHABDOMYOLYSIS [None]
